FAERS Safety Report 8200699-8 (Version None)
Quarter: 2012Q1

REPORT INFORMATION
  Report Type: 
  Country: None (occurrence: None)
  Receive Date: 20120312
  Receipt Date: 20120306
  Transmission Date: 20120608
  Serious: Yes (Death)
  Sender: FDA-Public Use
  Company Number: JP-ASTELLAS-2012JP001878

PATIENT
  Age: 53 Year
  Sex: Female

DRUGS (3)
  1. PROGRAF [Suspect]
     Route: 065
  2. TYROSINE KINASE INHIBITOR [Concomitant]
     Route: 065
  3. PROGRAF [Suspect]
     Route: 065

REACTIONS (1)
  - BRAIN ABSCESS [None]
